FAERS Safety Report 6987269-4 (Version None)
Quarter: 2010Q3

REPORT INFORMATION
  Report Type: 
  Country: None (occurrence: None)
  Receive Date: 20100916
  Receipt Date: 20100904
  Transmission Date: 20110219
  Serious: Yes (Other)
  Sender: FDA-Public Use
  Company Number: US-SHIRE-SPV1-2010-01538

PATIENT
  Age: 68 Year
  Sex: Female
  Weight: 71.655 kg

DRUGS (2)
  1. PENTASA [Suspect]
     Indication: CROHN'S DISEASE
     Dosage: 500 MG X 8 CAPSULES, 1X/DAY:QD
     Route: 048
  2. PROTONIX [Concomitant]
     Indication: GASTROOESOPHAGEAL REFLUX DISEASE
     Dosage: 40 MG, 1X/DAY:QD

REACTIONS (2)
  - BREAST CANCER [None]
  - PRODUCT QUALITY ISSUE [None]
